FAERS Safety Report 23344864 (Version 1)
Quarter: 2023Q4

REPORT INFORMATION
  Report Type: Spontaneous
  Country: CZ (occurrence: CZ)
  Receive Date: 20231228
  Receipt Date: 20231228
  Transmission Date: 20240110
  Serious: Yes (Other)
  Sender: FDA-Public Use
  Company Number: CZ-GERMAN-LIT/CZE/23/0032386

PATIENT
  Age: 43 Year
  Sex: Male

DRUGS (1)
  1. AZACITIDINE [Suspect]
     Active Substance: AZACITIDINE
     Indication: Myelodysplastic syndrome with excess blasts
     Dosage: 3 CYCLES
     Route: 058
     Dates: start: 2022, end: 2022

REACTIONS (2)
  - Acute myeloid leukaemia [Unknown]
  - Drug ineffective [Unknown]

NARRATIVE: CASE EVENT DATE: 20220101
